FAERS Safety Report 16082567 (Version 2)
Quarter: 2019Q2

REPORT INFORMATION
  Report Type: Spontaneous
  Country: ES (occurrence: ES)
  Receive Date: 20190318
  Receipt Date: 20190618
  Transmission Date: 20190711
  Serious: Yes (Other)
  Sender: FDA-Public Use
  Company Number: ES-ACCORD-113940

PATIENT
  Age: 30 Year
  Sex: Male

DRUGS (1)
  1. FINASTERIDA NORMON [Suspect]
     Active Substance: FINASTERIDE
     Indication: CAPILLARY DISORDER
     Route: 048
     Dates: start: 2018

REACTIONS (1)
  - Suicidal ideation [Recovered/Resolved]

NARRATIVE: CASE EVENT DATE: 201810
